FAERS Safety Report 10907443 (Version 1)
Quarter: 2015Q1

REPORT INFORMATION
  Report Type: Spontaneous
  Country: IT (occurrence: IT)
  Receive Date: 20150312
  Receipt Date: 20150312
  Transmission Date: 20150721
  Serious: Yes (Life-Threatening, Other)
  Sender: FDA-Public Use
  Company Number: IT-ASTRAZENECA-2015SE22433

PATIENT
  Age: 70 Year
  Sex: Female

DRUGS (2)
  1. MEPIVACAINE [Suspect]
     Active Substance: MEPIVACAINE\MEPIVACAINE HYDROCHLORIDE
     Indication: LOCAL ANAESTHESIA
     Dosage: 5 ML ROPIVACAINE 1% AND 5 ML MEPIVACAINE 2% WITH AN ATKINSON NEEDLE 25 G 22 MM
     Route: 065
  2. ROPIVACAINE [Suspect]
     Active Substance: ROPIVACAINE
     Indication: LOCAL ANAESTHESIA
     Dosage: 5 ML ROPIVACAINE 1% AND 5 ML MEPIVACAINE 2% WITH AN ATKINSON NEEDLE 25 G 22 MM
     Route: 065

REACTIONS (7)
  - Toxicity to various agents [Recovered/Resolved]
  - Dizziness [Recovered/Resolved]
  - Coma [Recovered/Resolved]
  - Headache [Recovered/Resolved]
  - Sinus tachycardia [Recovered/Resolved]
  - Respiratory arrest [Recovered/Resolved]
  - Hypertension [Recovered/Resolved]
